FAERS Safety Report 4489174-4 (Version None)
Quarter: 2004Q4

REPORT INFORMATION
  Report Type: 
  Country: None (occurrence: None)
  Receive Date: 20041029
  Receipt Date: 20041019
  Transmission Date: 20050328
  Serious: Yes (Other)
  Sender: FDA-Public Use
  Company Number: DE-JNJFOC-20040901057

PATIENT
  Sex: Male
  Weight: 43.6 kg

DRUGS (1)
  1. CONCERTA [Suspect]
     Route: 049
     Dates: start: 20040818

REACTIONS (2)
  - MONOCYTOSIS [None]
  - NEUTROPENIA [None]
